FAERS Safety Report 7704708-1 (Version None)
Quarter: 2011Q3

REPORT INFORMATION
  Report Type: 
  Country: None (occurrence: None)
  Receive Date: 20110823
  Receipt Date: 20101111
  Transmission Date: 20111222
  Serious: Yes (Other)
  Sender: FDA-Public Use
  Company Number: US-BRISTOL-MYERS SQUIBB COMPANY-15382906

PATIENT
  Age: 40 Year
  Sex: Female
  Weight: 51 kg

DRUGS (1)
  1. ESTRACE [Suspect]
     Indication: HORMONE REPLACEMENT THERAPY
     Dosage: STOPPED AFTER 1 OR 2 MONTHS

REACTIONS (3)
  - HOT FLUSH [None]
  - DEPRESSION [None]
  - BREAST ENGORGEMENT [None]
